FAERS Safety Report 4767659-0 (Version None)
Quarter: 2005Q3

REPORT INFORMATION
  Report Type: 
  Country: None (occurrence: None)
  Receive Date: 20050912
  Receipt Date: 20050426
  Transmission Date: 20060218
  Serious: Yes (Other)
  Sender: FDA-Public Use
  Company Number: 2005122004

PATIENT
  Sex: Female

DRUGS (4)
  1. BEXTRA [Suspect]
     Indication: PROCEDURAL PAIN
     Dates: start: 20040101
  2. LEXOTAN (BROMAZEPAM) [Concomitant]
  3. FLUOXETINE [Concomitant]
  4. CLONAZEPAM [Concomitant]

REACTIONS (8)
  - ABDOMINAL PAIN [None]
  - ASTHENIA [None]
  - BLISTER [None]
  - BLOOD TEST ABNORMAL [None]
  - DENGUE FEVER [None]
  - DIARRHOEA [None]
  - ERYTHEMA [None]
  - VIRAL INFECTION [None]
